FAERS Safety Report 15849952 (Version 2)
Quarter: 2019Q2

REPORT INFORMATION
  Report Type: Spontaneous
  Country: US (occurrence: US)
  Receive Date: 20190121
  Receipt Date: 20190501
  Transmission Date: 20190711
  Serious: Yes (Other)
  Sender: FDA-Public Use
  Company Number: US-SA-2019SA011062

PATIENT
  Age: 54 Year
  Sex: Female
  Weight: 58.7 kg

DRUGS (16)
  1. DUPIXENT [Suspect]
     Active Substance: DUPILUMAB
     Indication: DERMATITIS ATOPIC
     Dosage: 300 MG, QOW
     Route: 058
     Dates: start: 20170810
  2. ASMANEX [Concomitant]
     Active Substance: MOMETASONE FUROATE
  3. SELENIUM [SELENIUM SULFIDE] [Concomitant]
  4. DEBROX [Concomitant]
     Active Substance: CARBAMIDE PEROXIDE
  5. SARNA [CAMPHOR;MENTHOL] [Concomitant]
  6. HYDROCERIN [Concomitant]
  7. ALBUTEROL [SALBUTAMOL] [Concomitant]
     Active Substance: ALBUTEROL
  8. HYDROCORTISONE. [Concomitant]
     Active Substance: HYDROCORTISONE
  9. BECLOMETHASONE [BECLOMETASONE] [Concomitant]
     Active Substance: BECLOMETHASONE
  10. ATROVENT [Concomitant]
     Active Substance: IPRATROPIUM BROMIDE
  11. FLUTICASONE. [Concomitant]
     Active Substance: FLUTICASONE
  12. MONTELUKAST [Concomitant]
     Active Substance: MONTELUKAST SODIUM
  13. CLOBETASONE [Concomitant]
     Active Substance: CLOBETASONE
  14. FLUOCINONIDE. [Concomitant]
     Active Substance: FLUOCINONIDE
  15. NIZORAL [Concomitant]
     Active Substance: KETOCONAZOLE
  16. MUPIROCIN. [Concomitant]
     Active Substance: MUPIROCIN

REACTIONS (6)
  - Injection site nodule [Recovered/Resolved]
  - Tenderness [Recovered/Resolved]
  - Erythema [Recovered/Resolved]
  - Product dose omission [Unknown]
  - Injection site necrosis [Recovered/Resolved]
  - Dermatitis atopic [Unknown]

NARRATIVE: CASE EVENT DATE: 20180530
